FAERS Safety Report 13289545 (Version 2)
Quarter: 2017Q4

REPORT INFORMATION
  Report Type: Spontaneous
  Country: US (occurrence: US)
  Receive Date: 20170302
  Receipt Date: 20171005
  Transmission Date: 20180320
  Serious: No
  Sender: FDA-Public Use
  Company Number: US-JNJFOC-20170102102

PATIENT
  Sex: Male

DRUGS (1)
  1. PANCREAZE [Suspect]
     Active Substance: PANCRELIPASE AMYLASE\PANCRELIPASE LIPASE\PANCRELIPASE PROTEASE
     Indication: PRODUCT USED FOR UNKNOWN INDICATION
     Route: 048

REACTIONS (3)
  - Drug dose omission [Not Recovered/Not Resolved]
  - Product availability issue [Unknown]
  - Abdominal pain upper [Not Recovered/Not Resolved]
